FAERS Safety Report 9316968 (Version 2)
Quarter: 2013Q2

REPORT INFORMATION
  Report Type: Spontaneous
  Country: GB (occurrence: None)
  Receive Date: 20130523
  Receipt Date: 20130528
  Transmission Date: 20140414
  Serious: Yes (Other)
  Sender: FDA-Public Use
  Company Number: AUR-APL-2013-04136

PATIENT
  Age: 67 Year
  Sex: Female
  Weight: 68.9 kg

DRUGS (8)
  1. ALENDRONIC ACID (ALENDRONIC ACID) [Suspect]
     Indication: OSTEOPOROSIS
     Route: 048
     Dates: start: 20040225
  2. HUMIRA [Suspect]
     Indication: RHEUMATOID ARTHRITIS
     Route: 058
     Dates: start: 20110314, end: 20120703
  3. ADCAL-D3 (LEKOVIT CA) [Concomitant]
  4. COENZYME Q10 (UBIDECARNONE) [Concomitant]
  5. FISH OIL CONCENTRATE (FISH OIL) [Concomitant]
  6. LANSOPRAZOLE (LANSOPRAZOLE) [Concomitant]
  7. PARACETAMOL (PRACETAMOL) [Concomitant]
  8. ZYFLAMAX (BERBERIS VULGARIS) [Concomitant]

REACTIONS (7)
  - Eosinophilia [None]
  - Glossodynia [None]
  - Arthritis [None]
  - Squamous cell carcinoma [None]
  - Tongue neoplasm malignant stage unspecified [None]
  - Nerve injury [None]
  - Arthritis [None]
